FAERS Safety Report 8772382 (Version 2)
Quarter: 2012Q4

REPORT INFORMATION
  Report Type: 
  Country: GB (occurrence: GB)
  Receive Date: 20120905
  Receipt Date: 20120928
  Transmission Date: 20130627
  Serious: Yes (Hospitalization)
  Sender: FDA-Public Use
  Company Number: PHFR2012GB004793

PATIENT
  Age: 28 Year
  Sex: Male
  Weight: 106.7 kg

DRUGS (4)
  1. CLOZARIL [Suspect]
     Indication: SCHIZOPHRENIA
     Dosage: 350 mg, UNK
     Route: 048
     Dates: start: 20110118
  2. ESCITALOPRAM [Concomitant]
     Indication: DEPRESSION
     Dosage: 5 mg, UNK
     Route: 048
     Dates: start: 201012, end: 201208
  3. HYOSCINE HYDROBROMIDE [Concomitant]
     Indication: SALIVARY HYPERSECRETION
     Dosage: 300 mg, UNK
     Route: 048
     Dates: start: 201103
  4. OMEPRAZOLE [Concomitant]
     Route: 048

REACTIONS (8)
  - Pleurisy [Unknown]
  - Lower respiratory tract infection [Unknown]
  - Pleural effusion [Recovered/Resolved]
  - Pneumonia [Recovered/Resolved]
  - White blood cell count increased [Unknown]
  - Neutrophil count increased [Unknown]
  - Blood alkaline phosphatase increased [Unknown]
  - Gamma-glutamyltransferase increased [Unknown]
